FAERS Safety Report 17420618 (Version 5)
Quarter: 2023Q2

REPORT INFORMATION
  Report Type: Report from Study
  Country: TW (occurrence: None)
  Receive Date: 20200214
  Receipt Date: 20230525
  Transmission Date: 20230722
  Serious: Yes (Life-Threatening)
  Sender: FDA-Public Use
  Company Number: 2019SF18799

PATIENT
  Age: 23891 Day
  Sex: Male

DRUGS (45)
  1. DURVALUMAB [Suspect]
     Active Substance: DURVALUMAB
     Indication: Non-small cell lung cancer stage IV
     Route: 042
     Dates: start: 20190723, end: 20190723
  2. PACLITAXEL [Suspect]
     Active Substance: PACLITAXEL
     Indication: Non-small cell lung cancer stage IV
     Route: 042
     Dates: start: 20190723, end: 20190723
  3. CARBOPLATIN [Suspect]
     Active Substance: CARBOPLATIN
     Indication: Non-small cell lung cancer stage IV
     Route: 042
     Dates: start: 20190723, end: 20190723
  4. SPIRONOLACTONE [Concomitant]
     Active Substance: SPIRONOLACTONE
     Indication: Hypertension
     Route: 048
     Dates: start: 20190731, end: 20190810
  5. RASITOL(FUROSEMIDE) [Concomitant]
     Indication: Hypertension
     Route: 048
     Dates: start: 20190731
  6. NEBILET(NEBIVOLOL) [Concomitant]
     Indication: Hypertension
     Route: 048
     Dates: start: 20190731, end: 20190817
  7. ACTEIN (ACETYLCYSTEINE) [Concomitant]
     Indication: Productive cough
     Route: 048
     Dates: start: 20190629, end: 20190728
  8. ACTEIN (ACETYLCYSTEINE) [Concomitant]
     Indication: Productive cough
     Route: 048
     Dates: start: 20190730, end: 20190813
  9. TRANSAMIN (TRANEXAMIC ACID) [Concomitant]
     Indication: Haemoptysis
     Route: 048
     Dates: start: 20190703, end: 20190729
  10. TRANSAMIN (TRANEXAMIC ACID) [Concomitant]
     Indication: Haemolysis
     Route: 048
     Dates: start: 20190703, end: 20190729
  11. TRANSAMIN (TRANEXAMIC ACID) [Concomitant]
     Indication: Haemoptysis
     Route: 042
     Dates: start: 20190730, end: 20190730
  12. TRANSAMIN (TRANEXAMIC ACID) [Concomitant]
     Indication: Haemolysis
     Route: 042
     Dates: start: 20190730, end: 20190730
  13. TRANSAMIN (TRANEXAMIC ACID) [Concomitant]
     Indication: Haemoptysis
     Route: 042
     Dates: start: 20190730, end: 20190806
  14. TRANSAMIN (TRANEXAMIC ACID) [Concomitant]
     Indication: Haemolysis
     Route: 042
     Dates: start: 20190730, end: 20190806
  15. MEDICON-A (DEXTROMETHORPHAN+LYSOZYM E+CRESOLSULFONATE) [Concomitant]
     Indication: Haemoptysis
     Route: 048
     Dates: start: 20190703, end: 20190813
  16. MEGEST(MEGESTROL) [Concomitant]
     Indication: Prophylaxis
     Route: 048
     Dates: start: 20190703, end: 20190813
  17. DEXAMETHASONE [Concomitant]
     Active Substance: DEXAMETHASONE
     Indication: Premedication
     Dosage: 10.0MG ONCE/SINGLE ADMINISTRATION
     Route: 042
     Dates: start: 20190723, end: 20190723
  18. DEXAMETHASONE [Concomitant]
     Active Substance: DEXAMETHASONE
     Indication: Premedication
     Dosage: 20.0MG ONCE/SINGLE ADMINISTRATION
     Route: 042
     Dates: start: 20190723, end: 20190723
  19. PALONOSETRON [Concomitant]
     Active Substance: PALONOSETRON
     Indication: Premedication
     Dosage: 0.25MG ONCE/SINGLE ADMINISTRATION
     Route: 042
     Dates: start: 20190723, end: 20190723
  20. EMEND(APREPITANT) [Concomitant]
     Indication: Prophylaxis of nausea and vomiting
     Route: 048
     Dates: start: 20190724, end: 20190728
  21. NOVAMIN(PROCHLORPERAZINE) [Concomitant]
     Indication: Premedication
     Route: 048
     Dates: start: 20190724, end: 20190728
  22. METOCLOPRAMIDE [Concomitant]
     Active Substance: METOCLOPRAMIDE
     Indication: Premedication
     Route: 048
     Dates: start: 20190724, end: 20190728
  23. METOCLOPRAMIDE [Concomitant]
     Active Substance: METOCLOPRAMIDE
     Indication: Abdominal distension
     Route: 048
     Dates: start: 20190724, end: 20190728
  24. ENCORE(ACETYLCYSTEINE) [Concomitant]
     Indication: Increased viscosity of upper respiratory secretion
     Route: 055
     Dates: start: 20190729, end: 20190729
  25. MEROPENEM [Concomitant]
     Active Substance: MEROPENEM
     Indication: Pneumonitis
     Route: 042
     Dates: start: 20190730, end: 20190813
  26. PARAMOL(ACETAMINOPHEN) [Concomitant]
     Indication: Chest pain
     Route: 048
     Dates: start: 20190730, end: 20190813
  27. BISOPROLOL [Concomitant]
     Active Substance: BISOPROLOL
     Indication: Sinus tachycardia
     Dosage: 1.25MG ONCE/SINGLE ADMINISTRATION
     Route: 048
     Dates: start: 20190731, end: 20190731
  28. BISOPROLOL [Concomitant]
     Active Substance: BISOPROLOL
     Indication: Sinus tachycardia
     Dosage: 1.25MG ONCE/SINGLE ADMINISTRATION
     Route: 048
     Dates: start: 20190731, end: 20190731
  29. HERBESSER(DILTIAZEM) [Concomitant]
     Indication: Sinus tachycardia
     Dosage: 30.0MG ONCE/SINGLE ADMINISTRATION
     Route: 048
     Dates: start: 20190731, end: 20190731
  30. HERBESSER(DILTIAZEM) [Concomitant]
     Indication: Sinus tachycardia
     Dosage: 30.0MG ONCE/SINGLE ADMINISTRATION
     Route: 048
     Dates: start: 20190731
  31. K-GLU (POTASSIUM GLUCONATE) [Concomitant]
     Indication: Hypokalaemia
     Route: 048
     Dates: start: 20190803, end: 20190805
  32. K-GLU (POTASSIUM GLUCONATE) [Concomitant]
     Indication: Hypokalaemia
     Route: 048
     Dates: start: 20190803, end: 20190803
  33. KCL [Concomitant]
     Active Substance: POTASSIUM CHLORIDE
     Indication: Hypokalaemia
     Dosage: 20.0MEQ ONCE/SINGLE ADMINISTRATION
     Route: 042
     Dates: start: 20190802, end: 20190803
  34. FAMOTIDINE [Concomitant]
     Active Substance: FAMOTIDINE
     Indication: Abdominal distension
     Dosage: 20.0MG ONCE/SINGLE ADMINISTRATION
     Route: 048
     Dates: start: 20190803, end: 20190803
  35. FAMOTIDINE [Concomitant]
     Active Substance: FAMOTIDINE
     Indication: Abdominal distension
     Dosage: 20.0MG ONCE/SINGLE ADMINISTRATION
     Route: 048
     Dates: start: 20190803
  36. FLEXBUMIN (ALBUMIN) [Concomitant]
     Indication: Hypoalbuminaemia
     Dosage: 50.0ML ONCE/SINGLE ADMINISTRATION
     Route: 042
     Dates: start: 20190805, end: 20190805
  37. FLEXBUMIN (ALBUMIN) [Concomitant]
     Indication: Hypoalbuminaemia
     Dosage: 50.0ML ONCE/SINGLE ADMINISTRATION
     Route: 042
     Dates: start: 20190805, end: 20190807
  38. ACETAMINOPHEN [Concomitant]
     Active Substance: ACETAMINOPHEN
     Indication: Prophylaxis
     Route: 048
     Dates: start: 20190725, end: 20190729
  39. ACETAMOL(PROPACETAMOL HCL) [Concomitant]
     Indication: Pneumonitis
     Dosage: 1.0G ONCE/SINGLE ADMINISTRATION
     Route: 042
     Dates: start: 20190729, end: 20190729
  40. PIPERACILLIN SODIUM\TAZOBACTAM SODIUM [Concomitant]
     Active Substance: PIPERACILLIN SODIUM\TAZOBACTAM SODIUM
     Indication: Pneumonitis
     Route: 042
     Dates: start: 20190729, end: 20190729
  41. LACTULOSE [Concomitant]
     Active Substance: LACTULOSE
     Indication: Jaundice
     Route: 048
     Dates: start: 20190731, end: 20190802
  42. LACTULOSE [Concomitant]
     Active Substance: LACTULOSE
     Indication: Hepatic failure
     Route: 048
     Dates: start: 20190731, end: 20190802
  43. FUROSEMIDE [Concomitant]
     Active Substance: FUROSEMIDE
     Indication: Ascites
     Dosage: 20.0MG ONCE/SINGLE ADMINISTRATION
     Route: 042
     Dates: start: 20190803, end: 20190803
  44. ZODENOX(ZOLPIDEM) [Concomitant]
     Indication: Insomnia
     Route: 048
     Dates: start: 20190629, end: 20190703
  45. CURAM (AMOXICILLIN + CLAVULANIC ACID) [Concomitant]
     Indication: Infection prophylaxis
     Route: 048
     Dates: start: 20190629, end: 20190703

REACTIONS (1)
  - Hepatic failure [Not Recovered/Not Resolved]

NARRATIVE: CASE EVENT DATE: 20190805
